FAERS Safety Report 8124267-1 (Version None)
Quarter: 2012Q1

REPORT INFORMATION
  Report Type: 
  Country: None (occurrence: None)
  Receive Date: 20120209
  Receipt Date: 20120206
  Transmission Date: 20120608
  Serious: Yes (Hospitalization, Other)
  Sender: FDA-Public Use
  Company Number: US-PFIZER INC-2012033694

PATIENT
  Sex: Male

DRUGS (7)
  1. LOMOTIL [Suspect]
     Indication: DIARRHOEA
     Dosage: 6 PILLS DAILY
  2. HUMIRA [Suspect]
     Indication: CROHN'S DISEASE
     Dosage: 40 MG, 1 IN 2 WK
     Dates: start: 20110114
  3. CYANOCOBALAMIN-TANNIN COMPLEX [Concomitant]
     Dosage: EVERY MONTH
  4. METOPROLOL TARTRATE [Concomitant]
     Indication: BLOOD PRESSURE
     Dosage: 50 MG, 1X/DAY
  5. ALPRAZOLAM [Concomitant]
     Indication: ANXIETY
     Dosage: 0.5 MG, AS NEEDED
  6. METAMUCIL-2 [Concomitant]
     Dosage: 6 DAILY
  7. MEGESTROL ACETATE [Concomitant]

REACTIONS (2)
  - INTESTINAL STENOSIS [None]
  - ILEUS [None]
